FAERS Safety Report 14878231 (Version 1)
Quarter: 2018Q2

REPORT INFORMATION
  Report Type: Spontaneous
  Country: CO (occurrence: CO)
  Receive Date: 20180510
  Receipt Date: 20180510
  Transmission Date: 20180711
  Serious: Yes (Hospitalization)
  Sender: FDA-Public Use
  Company Number: CO-AMGEN-COLSP2017182613

PATIENT
  Age: 64 Year
  Sex: Female

DRUGS (1)
  1. ENBREL [Suspect]
     Active Substance: ETANERCEPT
     Indication: PSORIASIS
     Dosage: 25 MG, 2X/WEEK (TUESDAY AND FRIDAY)
     Route: 058
     Dates: start: 20171128, end: 20180219

REACTIONS (6)
  - Haemorrhage [Unknown]
  - Condition aggravated [Recovering/Resolving]
  - Drug prescribing error [Unknown]
  - Product use issue [Unknown]
  - Blood pressure increased [Unknown]
  - Psoriasis [Recovering/Resolving]

NARRATIVE: CASE EVENT DATE: 201803
